FAERS Safety Report 4342443-0 (Version None)
Quarter: 2004Q2

REPORT INFORMATION
  Report Type: 
  Country: None (occurrence: None)
  Receive Date: 20040413
  Receipt Date: 20040401
  Transmission Date: 20050107
  Serious: Yes (Hospitalization)
  Sender: FDA-Public Use
  Company Number: ZANA001162

PATIENT
  Age: 11 Year
  Sex: Female
  Weight: 24 kg

DRUGS (1)
  1. TIZANIDINE HCL [Suspect]
     Dosage: 4MG ONCE/SINGLE OTHER
     Route: 050
     Dates: start: 20040310, end: 20040310

REACTIONS (3)
  - APATHY [None]
  - MEDICATION ERROR [None]
  - SOMNOLENCE [None]
